FAERS Safety Report 7716103-X (Version None)
Quarter: 2011Q3

REPORT INFORMATION
  Report Type: 
  Country: None (occurrence: None)
  Receive Date: 20110829
  Receipt Date: 20110816
  Transmission Date: 20111222
  Serious: Yes (Other)
  Sender: FDA-Public Use
  Company Number: US-GLAXOSMITHKLINE-A0942338A

PATIENT
  Age: 53 Year
  Sex: Female

DRUGS (4)
  1. HUMIRA [Suspect]
     Indication: CROHN'S DISEASE
     Dosage: 40MG EVERY TWO WEEKS
     Route: 065
     Dates: start: 20080101
  2. LAMICTAL [Suspect]
     Indication: DEPRESSION
     Dosage: 300MG PER DAY
     Route: 065
  3. PAXIL [Suspect]
     Indication: DEPRESSION
     Dosage: 62.5MG PER DAY
     Route: 065
  4. POTASSIUM [Concomitant]
     Dosage: 100MG PER DAY

REACTIONS (15)
  - SUICIDAL IDEATION [None]
  - HYPERTENSION [None]
  - DIARRHOEA [None]
  - INTESTINAL RESECTION [None]
  - DRUG INEFFECTIVE [None]
  - ABDOMINAL HERNIA [None]
  - DRUG INTERACTION [None]
  - BLOOD TRIGLYCERIDES INCREASED [None]
  - ADHESION [None]
  - DIABETES MELLITUS [None]
  - SCAR [None]
  - AMNESIA [None]
  - CRYING [None]
  - ABDOMINAL PAIN [None]
  - FLUID RETENTION [None]
